FAERS Safety Report 20946440 (Version 2)
Quarter: 2022Q3

REPORT INFORMATION
  Report Type: Spontaneous
  Country: US (occurrence: US)
  Receive Date: 20220610
  Receipt Date: 20220714
  Transmission Date: 20221026
  Serious: No
  Sender: FDA-Public Use
  Company Number: US-JNJFOC-20220610495

PATIENT
  Age: 40 Year
  Sex: Female

DRUGS (2)
  1. STELARA [Suspect]
     Active Substance: USTEKINUMAB
     Indication: Product used for unknown indication
     Route: 058
     Dates: start: 202201
  2. STELARA [Suspect]
     Active Substance: USTEKINUMAB
     Route: 058
     Dates: start: 2022

REACTIONS (2)
  - Drug ineffective [Unknown]
  - Off label use [Unknown]

NARRATIVE: CASE EVENT DATE: 20220101
